FAERS Safety Report 4718971-2 (Version None)
Quarter: 2005Q3

REPORT INFORMATION
  Report Type: 
  Country: None (occurrence: None)
  Receive Date: 20050719
  Receipt Date: 20050701
  Transmission Date: 20060218
  Serious: Yes (Hospitalization)
  Sender: FDA-Public Use
  Company Number: FR_050406187

PATIENT
  Age: 70 Year
  Sex: Male

DRUGS (6)
  1. ZYPREXA [Suspect]
     Indication: BIPOLAR I DISORDER
     Dosage: 7.5 MG/1 DAY
     Dates: start: 20030301
  2. ZYPREXA [Suspect]
     Indication: DELIRIUM
     Dosage: 7.5 MG/1 DAY
     Dates: start: 20030301
  3. DEPAKOTE [Concomitant]
  4. ANAFRANIL [Concomitant]
  5. SERC/00141802 (BETAHISTINE HYDROCHLORIDE) [Concomitant]
  6. ISOPTIN [Concomitant]

REACTIONS (5)
  - DELIRIUM [None]
  - DIABETIC HYPEROSMOLAR COMA [None]
  - FEBRILE CONVULSION [None]
  - INCORRECT DOSE ADMINISTERED [None]
  - WEIGHT INCREASED [None]
